FAERS Safety Report 4386786-3 (Version None)
Quarter: 2004Q2

REPORT INFORMATION
  Report Type: 
  Country: None (occurrence: None)
  Receive Date: 20040607
  Receipt Date: 20030528
  Transmission Date: 20050107
  Serious: Yes (Other)
  Sender: FDA-Public Use
  Company Number: 335472

PATIENT
  Age: 13 Year
  Sex: Female
  Weight: 48.5 kg

DRUGS (2)
  1. ACCUTANE [Suspect]
     Indication: ACNE
     Dosage: 1 DOSE FORM DAILY ORAL
     Route: 048
     Dates: start: 20030120, end: 20030401
  2. TYLENOL SINUS (ACETAMINOPHEN/PSEUDOEPHEDRINE HYDROCHLORIDE) [Concomitant]

REACTIONS (1)
  - GRAND MAL CONVULSION [None]
